FAERS Safety Report 24214414 (Version 1)
Quarter: 2024Q3

REPORT INFORMATION
  Report Type: Report from Study
  Country: US (occurrence: US)
  Receive Date: 20240815
  Receipt Date: 20240815
  Transmission Date: 20241016
  Serious: Yes (Hospitalization)
  Sender: TAKEDA
  Company Number: US-TAKEDA-2024TUS079824

PATIENT
  Sex: Female
  Weight: 59.592 kg

DRUGS (1)
  1. BRIGATINIB [Suspect]
     Active Substance: BRIGATINIB
     Indication: Lung carcinoma cell type unspecified stage 0
     Dosage: 180 MILLIGRAM, QD
     Route: 048

REACTIONS (3)
  - Epistaxis [Unknown]
  - Blood pressure increased [Unknown]
  - Abdominal pain upper [Unknown]
